FAERS Safety Report 7301908-X (Version None)
Quarter: 2011Q1

REPORT INFORMATION
  Report Type: 
  Country: None (occurrence: None)
  Receive Date: 20110218
  Receipt Date: 20110210
  Transmission Date: 20110831
  Serious: Yes (Hospitalization)
  Sender: FDA-Public Use
  Company Number: DK-ROCHE-758100

PATIENT
  Sex: Male

DRUGS (6)
  1. CODEINE [Concomitant]
  2. RIBAVIRIN [Suspect]
     Route: 048
     Dates: start: 20101013
  3. ACETAMINOPHEN [Concomitant]
  4. PEGINTERFERON ALFA-2A [Suspect]
     Route: 058
     Dates: start: 20101013
  5. BLINDED BMS-790052 (HCV NS5A INHIBITOR) [Suspect]
     Dosage: DOSE BLINDED
     Route: 048
     Dates: start: 20101013
  6. AMLODIPINE [Concomitant]

REACTIONS (2)
  - DEPRESSION [None]
  - FALL [None]
